FAERS Safety Report 5924347-2 (Version None)
Quarter: 2008Q4

REPORT INFORMATION
  Report Type: 
  Country: None (occurrence: None)
  Receive Date: 20081020
  Receipt Date: 20081009
  Transmission Date: 20090506
  Serious: Yes (Other)
  Sender: FDA-Public Use
  Company Number: AU-PFIZER INC-2008055571

PATIENT
  Sex: Male
  Weight: 97 kg

DRUGS (2)
  1. DILANTIN [Suspect]
     Route: 048
  2. AVAPRO [Concomitant]
     Route: 048

REACTIONS (1)
  - CONVULSION [None]
